FAERS Safety Report 19151707 (Version 1)
Quarter: 2021Q2

REPORT INFORMATION
  Report Type: Spontaneous
  Country: US (occurrence: US)
  Receive Date: 20210419
  Receipt Date: 20210419
  Transmission Date: 20210717
  Serious: Yes (Other)
  Sender: FDA-Public Use
  Company Number: US-SA-2021SA117206

PATIENT
  Age: 18 Year
  Sex: Male

DRUGS (5)
  1. LANTUS SOLOSTAR [Suspect]
     Active Substance: INSULIN GLARGINE
     Indication: TYPE 1 DIABETES MELLITUS
     Dosage: 30 IU, QD
     Dates: start: 2016
  2. CLONIDINE. [Concomitant]
     Active Substance: CLONIDINE
     Dosage: UNK
  3. SEROQUEL [Concomitant]
     Active Substance: QUETIAPINE FUMARATE
     Dosage: UNK
  4. ALLI [Concomitant]
     Active Substance: ORLISTAT
     Dosage: UNK
  5. KEPPRA [Concomitant]
     Active Substance: LEVETIRACETAM
     Dosage: UNK

REACTIONS (7)
  - Epilepsy [Unknown]
  - Pyrexia [Unknown]
  - Hypoglycaemia [Unknown]
  - Autism spectrum disorder [Unknown]
  - Seizure [Unknown]
  - Speech disorder [Unknown]
  - Blood glucose increased [Unknown]
